FAERS Safety Report 18868345 (Version 8)
Quarter: 2021Q2

REPORT INFORMATION
  Report Type: Spontaneous
  Country: US (occurrence: US)
  Receive Date: 20210209
  Receipt Date: 20210618
  Transmission Date: 20210717
  Serious: No
  Sender: FDA-Public Use
  Company Number: US-GLAXOSMITHKLINE-US2021AMR028649

PATIENT
  Sex: Female

DRUGS (9)
  1. ZEJULA [Suspect]
     Active Substance: NIRAPARIB
     Dosage: UNK, 100 MG ALTERNATING WITH 200 MG
  2. ZEJULA [Suspect]
     Active Substance: NIRAPARIB
     Dosage: 200 MG, QOD
     Dates: start: 20210127
  3. ZEJULA [Suspect]
     Active Substance: NIRAPARIB
     Dosage: 100 MG, QOD
     Dates: start: 20210127
  4. ZEJULA [Suspect]
     Active Substance: NIRAPARIB
     Dosage: 200 MG, QOD
  5. ZEJULA [Suspect]
     Active Substance: NIRAPARIB
     Dosage: 100 MG, QOD
  6. AVASTIN [Suspect]
     Active Substance: BEVACIZUMAB
     Indication: PRODUCT USED FOR UNKNOWN INDICATION
     Dosage: UNK (INFUSIONS MONTHLY)
  7. ZEJULA [Suspect]
     Active Substance: NIRAPARIB
     Indication: OVARIAN CANCER
     Dosage: UNK (100 MG ALT WITH 200 MG QD)
     Dates: start: 202011
  8. ZEJULA [Suspect]
     Active Substance: NIRAPARIB
     Dosage: UNK, QOD, QOD, 100MG EVERY OTHER DAY ALTERNATING WITH 200MG EVERY OTHER DAY
  9. ZEJULA [Suspect]
     Active Substance: NIRAPARIB
     Dosage: UNK (100MG ALTERNATING 200MG DAILY)

REACTIONS (17)
  - Hypertension [Recovering/Resolving]
  - Blood pressure abnormal [Unknown]
  - Limb discomfort [Unknown]
  - Insomnia [Unknown]
  - Product use issue [Unknown]
  - Back disorder [Unknown]
  - Back pain [Recovering/Resolving]
  - Nausea [Not Recovered/Not Resolved]
  - Platelet count decreased [Recovering/Resolving]
  - Protein urine present [Unknown]
  - Nail disorder [Unknown]
  - Blood cholesterol increased [Not Recovered/Not Resolved]
  - Musculoskeletal stiffness [Not Recovered/Not Resolved]
  - Myalgia [Not Recovered/Not Resolved]
  - Spinal stenosis [Unknown]
  - Muscle spasms [Unknown]
  - Asthenia [Unknown]
